FAERS Safety Report 9224776 (Version 1)
Quarter: 2013Q2

REPORT INFORMATION
  Report Type: Spontaneous
  Country: US (occurrence: None)
  Receive Date: 20130409
  Receipt Date: 20130409
  Transmission Date: 20140414
  Serious: Yes (Other)
  Sender: FDA-Public Use
  Company Number: None

PATIENT
  Age: 47 Year
  Sex: Female
  Weight: 129.5 kg

DRUGS (4)
  1. CARBIODOPA/LEVODOPA/ENTACAPINE [Suspect]
     Indication: PARKINSON^S DISEASE
     Dates: start: 20130327, end: 20130404
  2. RASAGELINE [Concomitant]
  3. ROPINIROLE ER [Concomitant]
  4. CARBIDOPA/LEVODOPA [Concomitant]

REACTIONS (6)
  - Movement disorder [None]
  - Dysphagia [None]
  - Dyspnoea [None]
  - Mood swings [None]
  - Muscle rigidity [None]
  - Poor quality drug administered [None]
